FAERS Safety Report 6303917-6 (Version None)
Quarter: 2009Q3

REPORT INFORMATION
  Report Type: 
  Country: None (occurrence: None)
  Receive Date: 20090805
  Receipt Date: 20090730
  Transmission Date: 20100115
  Serious: Yes (Death)
  Sender: FDA-Public Use
  Company Number: 2009EU002994

PATIENT
  Age: 60 Year
  Sex: Male

DRUGS (4)
  1. ALEFACEPT    INJECTION BLINDED(CODE NOTE BROKEN) INJECTION [Suspect]
     Indication: RENAL TRANSPLANT
     Dosage: 15 MG, WEEKLY, SUBCUTANEOUS
     Route: 058
     Dates: start: 20090313, end: 20090528
  2. PROGRAF [Suspect]
     Indication: RENAL TRANSPLANT
     Dosage: 3.5 MG, ORAL
     Route: 048
     Dates: start: 20090724
  3. MYCOPHENOLATE MOFETIL [Suspect]
     Indication: RENAL TRANSPLANT
     Dosage: 1 G, UID/QD, ORAL
     Route: 048
     Dates: start: 20090501, end: 20090506
  4. ARAVA [Concomitant]

REACTIONS (2)
  - POLYOMAVIRUS-ASSOCIATED NEPHROPATHY [None]
  - SEPTIC SHOCK [None]
